FAERS Safety Report 21188188 (Version 1)
Quarter: 2022Q3

REPORT INFORMATION
  Report Type: Spontaneous
  Country: SE (occurrence: SE)
  Receive Date: 20220809
  Receipt Date: 20220809
  Transmission Date: 20221026
  Serious: Yes (Other)
  Sender: FDA-Public Use
  Company Number: SE-AstraZeneca-2022A259677

PATIENT
  Age: 79 Year
  Sex: Female

DRUGS (5)
  1. ALENDRONATE [Suspect]
     Active Substance: ALENDRONATE SODIUM
     Indication: Product used for unknown indication
     Dosage: UNK
     Route: 065
  2. AMITRIPTYLINE [Suspect]
     Active Substance: AMITRIPTYLINE
     Indication: Product used for unknown indication
     Dosage: UNK
     Route: 065
  3. INDAPAMIDE [Suspect]
     Active Substance: INDAPAMIDE
     Indication: Product used for unknown indication
     Dosage: 3 MILLIGRAM, ONCE A DAY
     Route: 065
  4. IRON [Suspect]
     Active Substance: IRON
     Indication: Product used for unknown indication
     Dosage: 80 MILLIGRAM, ONCE A DAY
     Route: 065
  5. TERBUTALINE [Suspect]
     Active Substance: TERBUTALINE
     Indication: Product used for unknown indication
     Dosage: UNK
     Route: 065

REACTIONS (3)
  - Rhabdomyolysis [Unknown]
  - Hypokalaemia [Unknown]
  - Hyponatraemia [Unknown]
